FAERS Safety Report 6943055-2 (Version None)
Quarter: 2010Q3

REPORT INFORMATION
  Report Type: 
  Country: None (occurrence: None)
  Receive Date: 20100824
  Receipt Date: 20100824
  Transmission Date: 20110219
  Serious: Yes (Other)
  Sender: FDA-Public Use
  Company Number: None

PATIENT
  Sex: Female
  Weight: 74.3899 kg

DRUGS (3)
  1. VENLAFAXINE HCL [Suspect]
     Indication: DEPRESSION
     Dosage: 1 BID PO
     Route: 048
     Dates: start: 20091201
  2. VENLAFAXINE HCL [Suspect]
     Indication: PANIC DISORDER
     Dosage: 1 BID PO
     Route: 048
     Dates: start: 20091201
  3. EFFEXOR [Concomitant]

REACTIONS (3)
  - DRUG EFFECT DECREASED [None]
  - HEADACHE [None]
  - NAUSEA [None]
